FAERS Safety Report 24428750 (Version 2)
Quarter: 2024Q4

REPORT INFORMATION
  Report Type: Spontaneous
  Country: JP (occurrence: JP)
  Receive Date: 20241011
  Receipt Date: 20241227
  Transmission Date: 20250115
  Serious: Yes (Other)
  Sender: FERRING
  Company Number: JP-ferring-EVA202401472FERRINGPH

PATIENT

DRUGS (2)
  1. NOCDURNA [Suspect]
     Active Substance: DESMOPRESSIN ACETATE
     Indication: Nocturia
     Dosage: 50 UG
     Route: 048
     Dates: start: 20230111, end: 20230516
  2. SILODOSIN [Concomitant]
     Active Substance: SILODOSIN
     Route: 065

REACTIONS (1)
  - Cardiac failure [Unknown]
